FAERS Safety Report 5333156-7 (Version None)
Quarter: 2007Q2

REPORT INFORMATION
  Report Type: 
  Country: None (occurrence: None)
  Receive Date: 20070524
  Receipt Date: 20070511
  Transmission Date: 20071010
  Serious: Yes (Other)
  Sender: FDA-Public Use
  Company Number: PHBS2007JP07301

PATIENT

DRUGS (1)
  1. TEGRETOL [Suspect]
     Route: 065

REACTIONS (1)
  - SICK SINUS SYNDROME [None]
